FAERS Safety Report 16399478 (Version 3)
Quarter: 2019Q3

REPORT INFORMATION
  Report Type: Report from Study
  Country: GR (occurrence: GR)
  Receive Date: 20190606
  Receipt Date: 20190730
  Transmission Date: 20191004
  Serious: Yes (Hospitalization, Disabling)
  Sender: FDA-Public Use
  Company Number: GR-BAYER-2019-105063

PATIENT
  Sex: Male
  Weight: 65 kg

DRUGS (17)
  1. CARVEDILOL. [Concomitant]
     Active Substance: CARVEDILOL
     Dosage: 3.125 MG, BID
     Dates: start: 20171101, end: 20190430
  2. ALDACTONE [Concomitant]
     Active Substance: SPIRONOLACTONE
     Indication: ASCITES
     Dosage: DAILY DOSE 100 MG
     Dates: start: 20190320, end: 20190621
  3. LASIX [Concomitant]
     Active Substance: FUROSEMIDE
     Indication: ASCITES
     Dosage: 40 MG, BID
     Dates: start: 20190320, end: 20190621
  4. D3 FIX [Concomitant]
     Dosage: DAILY DOSE 1200 MG
     Dates: start: 20170406, end: 20190621
  5. PARACETAMOL [Concomitant]
     Active Substance: ACETAMINOPHEN
     Indication: CHEST PAIN
  6. STIVARGA [Suspect]
     Active Substance: REGORAFENIB
     Indication: HEPATOCELLULAR CARCINOMA
     Dosage: DAILY DOSE 160 MG
     Dates: start: 20190502, end: 20190529
  7. HUMAN ALBUMIN [Concomitant]
     Active Substance: ALBUMIN HUMAN
     Indication: ASCITES
     Dosage: 100 ML, BID
     Dates: start: 20190617, end: 20190625
  8. FUROSEMIDE. [Concomitant]
     Active Substance: FUROSEMIDE
     Indication: PLEURAL EFFUSION
     Dosage: DAILY DOSE 20 MG
     Dates: start: 20190617
  9. PARACETAMOL [Concomitant]
     Active Substance: ACETAMINOPHEN
     Indication: HEPATIC PAIN
     Dosage: 1000 MG, TID
     Dates: start: 20190522, end: 20190607
  10. TROFOCARD [Concomitant]
     Dosage: 60.77 MG, BID
     Dates: start: 20170615, end: 20190621
  11. BEGALIN [SULTAMICILLIN] [Concomitant]
     Indication: ABDOMINAL PAIN
     Dosage: 3 G, TID
     Dates: start: 20190617, end: 20190625
  12. TRAMADOLE [Concomitant]
     Active Substance: TRAMADOL HYDROCHLORIDE
     Indication: CHEST PAIN
  13. ESOMEPRAZOLE. [Concomitant]
     Active Substance: ESOMEPRAZOLE MAGNESIUM
     Dosage: DAILY DOSE 40 MG
     Dates: start: 20170622, end: 20190621
  14. FILICINE [Concomitant]
     Dosage: DAILY DOSE 5 MG
     Dates: start: 20170601, end: 20190621
  15. NEUROBION [CYANOCOBALAMIN;PYRIDOXINE HYDROCHLORIDE;THIAMINE DISULF [Concomitant]
     Dosage: DAILY DOSE 100 MG
     Dates: start: 20180412, end: 20190621
  16. TRAMADOLE [Concomitant]
     Active Substance: TRAMADOL HYDROCHLORIDE
     Indication: HEPATIC PAIN
     Dosage: DAILY DOSE 50 MG
     Dates: start: 20190522, end: 20190607
  17. BEGALIN [SULTAMICILLIN] [Concomitant]
     Indication: DYSPNOEA

REACTIONS (4)
  - Pleural effusion [Recovered/Resolved]
  - Muscular weakness [Recovered/Resolved]
  - Hepatic pain [Recovered/Resolved]
  - Dyspnoea [Recovered/Resolved]

NARRATIVE: CASE EVENT DATE: 20190522
